FAERS Safety Report 9422613 (Version 2)
Quarter: 2013Q3

REPORT INFORMATION
  Report Type: Spontaneous
  Country: US (occurrence: US)
  Receive Date: 20130726
  Receipt Date: 20130805
  Transmission Date: 20140515
  Serious: No
  Sender: FDA-Public Use
  Company Number: US-009507513-1307USA003498

PATIENT
  Sex: Male

DRUGS (1)
  1. COPPERTONE ULTRAGUARD CONTINUOUS SPRAY SPF 70+ [Suspect]
     Indication: PRODUCT USED FOR UNKNOWN INDICATION
     Dosage: UNK, UNKNOWN
     Route: 061
     Dates: start: 20130625

REACTIONS (3)
  - Ocular hyperaemia [Not Recovered/Not Resolved]
  - Eye irritation [Not Recovered/Not Resolved]
  - Accidental exposure to product [Unknown]
